FAERS Safety Report 6064418-6 (Version None)
Quarter: 2009Q1

REPORT INFORMATION
  Report Type: 
  Country: None (occurrence: None)
  Receive Date: 20090203
  Receipt Date: 20090203
  Transmission Date: 20090719
  Serious: Yes (Other)
  Sender: FDA-Public Use
  Company Number: None

PATIENT
  Sex: Male
  Weight: 80.91 kg

DRUGS (3)
  1. NIASPAN [Suspect]
     Dosage: 1000MG TABLET SA 1000 MG QHS
     Route: 048
     Dates: start: 20080902, end: 20090202
  2. ASPIRIN [Concomitant]
  3. ENALAPRIL MALEATE [Concomitant]

REACTIONS (2)
  - HEADACHE [None]
  - PARAESTHESIA [None]
